FAERS Safety Report 5852970-2 (Version None)
Quarter: 2008Q3

REPORT INFORMATION
  Report Type: 
  Country: None (occurrence: None)
  Receive Date: 20080821
  Receipt Date: 20080811
  Transmission Date: 20090109
  Serious: Yes (Hospitalization)
  Sender: FDA-Public Use
  Company Number: FR-SANOFI-SYNTHELABO-A02200802443

PATIENT
  Sex: Male
  Weight: 110 kg

DRUGS (12)
  1. BISOPROLOL FUMARATE [Concomitant]
     Indication: DRUG USE FOR UNKNOWN INDICATION
     Route: 048
     Dates: start: 20080318
  2. TARDYFERON [Concomitant]
     Indication: DIARRHOEA
     Route: 048
     Dates: start: 20080405, end: 20080407
  3. ARESTAL [Concomitant]
     Indication: DIARRHOEA
     Route: 048
     Dates: start: 20080405, end: 20080407
  4. BACTRIM [Concomitant]
     Indication: DIARRHOEA
     Route: 048
     Dates: start: 20080405, end: 20080407
  5. PREVISCAN [Suspect]
     Indication: DRUG USE FOR UNKNOWN INDICATION
     Route: 048
     Dates: start: 20080318, end: 20080405
  6. PREVISCAN [Suspect]
     Route: 048
     Dates: start: 20080406
  7. ASPIRIN [Interacting]
     Indication: MYOCARDIAL INFARCTION
     Route: 048
     Dates: start: 20080318
  8. ASPIRIN [Interacting]
     Indication: ANGIOPLASTY
     Route: 048
     Dates: start: 20080318
  9. PLAVIX [Interacting]
     Indication: MYOCARDIAL INFARCTION
     Route: 048
     Dates: start: 20080318
  10. PLAVIX [Interacting]
     Indication: ANGIOPLASTY
     Route: 048
     Dates: start: 20080318
  11. TAHOR [Concomitant]
     Indication: DRUG USE FOR UNKNOWN INDICATION
     Route: 048
     Dates: start: 20080318
  12. OMACOR [Concomitant]
     Indication: DRUG USE FOR UNKNOWN INDICATION
     Route: 048
     Dates: start: 20080318

REACTIONS (3)
  - DRUG INTERACTION [None]
  - EPISTAXIS [None]
  - INTERNATIONAL NORMALISED RATIO INCREASED [None]
